FAERS Safety Report 26213091 (Version 1)
Quarter: 2025Q4

REPORT INFORMATION
  Report Type: Spontaneous
  Country: US (occurrence: US)
  Receive Date: 20251230
  Receipt Date: 20251230
  Transmission Date: 20260118
  Serious: Yes (Other)
  Sender: SANOFI AVENTIS
  Company Number: US-SA-2025SA388688

PATIENT
  Sex: Female
  Weight: 99.7 kg

DRUGS (17)
  1. DUPIXENT [Suspect]
     Active Substance: DUPILUMAB
     Indication: Asthma
     Dosage: 200 MG, QOW
     Route: 058
  2. ZEPBOUND [Concomitant]
     Active Substance: TIRZEPATIDE
  3. SPIKEVAX [Concomitant]
     Active Substance: CX-046684
  4. FLUAD NOS [Concomitant]
     Active Substance: INFLUENZA VIRUS VACCINE
  5. TYLENOL [Concomitant]
     Active Substance: ACETAMINOPHEN
  6. ALBUTEROL SULFATE [Concomitant]
     Active Substance: ALBUTEROL SULFATE
  7. ALBUTEROL SULFATE [Concomitant]
     Active Substance: ALBUTEROL SULFATE
  8. SYMBICORT [Concomitant]
     Active Substance: BUDESONIDE\FORMOTEROL FUMARATE DIHYDRATE
  9. PAMELOR [Concomitant]
     Active Substance: NORTRIPTYLINE HYDROCHLORIDE
  10. SERTRALINE HYDROCHLORIDE [Concomitant]
     Active Substance: SERTRALINE HYDROCHLORIDE
  11. LINZESS [Concomitant]
     Active Substance: LINACLOTIDE
  12. METHOTREXATE [Concomitant]
     Active Substance: METHOTREXATE
  13. VITAMIN D [Concomitant]
     Active Substance: VITAMIN D NOS
  14. METOPROLOL SUCCINATE [Concomitant]
     Active Substance: METOPROLOL SUCCINATE
  15. VITAMIN D3 [Concomitant]
     Active Substance: CHOLECALCIFEROL
  16. PANTOPRAZOLE SODIUM [Concomitant]
     Active Substance: PANTOPRAZOLE SODIUM
  17. HUMIRA [Concomitant]
     Active Substance: ADALIMUMAB

REACTIONS (5)
  - Ankylosing spondylitis [Unknown]
  - Arthritis [Unknown]
  - Arthralgia [Unknown]
  - Autonomic nervous system imbalance [Unknown]
  - Endometriosis [Unknown]
